FAERS Safety Report 18923905 (Version 1)
Quarter: 2021Q1

REPORT INFORMATION
  Report Type: Spontaneous
  Country: US (occurrence: US)
  Receive Date: 20210222
  Receipt Date: 20210222
  Transmission Date: 20210420
  Serious: Yes (Other)
  Sender: FDA-Public Use
  Company Number: US-PFIZER INC-2021138284

PATIENT
  Age: 85 Year
  Sex: Female

DRUGS (11)
  1. IBRANCE [Suspect]
     Active Substance: PALBOCICLIB
     Dosage: UNK
     Dates: start: 201810, end: 20200330
  2. RUXIENCE [Suspect]
     Active Substance: RITUXIMAB-PVVR
     Dosage: UNK
     Route: 042
  3. DOXORUBICIN HCL [Concomitant]
     Active Substance: DOXORUBICIN HYDROCHLORIDE
     Dosage: NK, CYCLIC (Q21 D CYCLE LENGTH: 21 NUMBER CYCLES: 6)
  4. VINCRISTINE [Concomitant]
     Active Substance: VINCRISTINE
     Dosage: NK, CYCLIC (Q21 D CYCLE LENGTH: 21 NUMBER CYCLES: 6)
  5. IBRANCE [Suspect]
     Active Substance: PALBOCICLIB
     Indication: BREAST CANCER
     Dosage: 125 MG
  6. IBRANCE [Suspect]
     Active Substance: PALBOCICLIB
     Dosage: 100 MG
     Dates: start: 20210204
  7. FEMARA [Concomitant]
     Active Substance: LETROZOLE
     Dosage: UNK
     Dates: start: 201810, end: 20200330
  8. IBRANCE [Suspect]
     Active Substance: PALBOCICLIB
     Dosage: 100 MG
     Dates: end: 20191220
  9. IBRANCE [Suspect]
     Active Substance: PALBOCICLIB
     Dosage: UNK
     Dates: end: 20190808
  10. CYCLOPHOSPHAMIDE. [Concomitant]
     Active Substance: CYCLOPHOSPHAMIDE
     Dosage: NK, CYCLIC (Q21 D CYCLE LENGTH: 21 NUMBER CYCLES: 6)
  11. PREDNISONE. [Concomitant]
     Active Substance: PREDNISONE
     Dosage: UNK, CYCLIC (Q21 D CYCLE LENGTH: 21 NUMBER CYCLES: 6)

REACTIONS (3)
  - Non-Hodgkin^s lymphoma [Unknown]
  - Second primary malignancy [Unknown]
  - Mental status changes [Unknown]
